FAERS Safety Report 10170392 (Version 1)
Quarter: 2014Q2

REPORT INFORMATION
  Report Type: Spontaneous
  Country: US (occurrence: US)
  Receive Date: 20140513
  Receipt Date: 20140513
  Transmission Date: 20141212
  Serious: No
  Sender: FDA-Public Use
  Company Number: US-UPSHER-SMITH LABORATORIES, INC.-13003266

PATIENT
  Age: 61 Year
  Sex: Female

DRUGS (11)
  1. KLOR-CON TABLETS [Suspect]
     Indication: BLOOD POTASSIUM DECREASED
     Dosage: 20 MEQ, TID
     Route: 048
     Dates: start: 2012, end: 201309
  2. KLOR-CON TABLETS [Suspect]
     Dosage: 60 MEQ Q AM, 40 MEQ AT NOON, 20 MEQ Q PM
     Route: 048
     Dates: start: 201309
  3. LEVOTHYROXINE [Concomitant]
     Dosage: UNK
  4. AMILORIDE [Concomitant]
     Dosage: UNK
  5. LACTULOSE [Concomitant]
     Dosage: UNK
  6. METOLAZONE [Concomitant]
     Dosage: UNK
  7. ADDERALL XR [Concomitant]
     Dosage: UNK
  8. GABAPENTIN [Concomitant]
     Dosage: UNK
  9. MAGNESIUM [Concomitant]
     Dosage: UNK
  10. OMEPRAZOLE [Concomitant]
     Dosage: UNK
  11. FUROSEMIDE [Concomitant]
     Dosage: UNK

REACTIONS (2)
  - Blood potassium decreased [Unknown]
  - Medication residue present [Not Recovered/Not Resolved]
